FAERS Safety Report 8307143-0 (Version None)
Quarter: 2012Q2

REPORT INFORMATION
  Report Type: 
  Country: None (occurrence: None)
  Receive Date: 20120424
  Receipt Date: 20120418
  Transmission Date: 20120825
  Serious: Yes (Other)
  Sender: FDA-Public Use
  Company Number: US-PFIZER INC-K201100812

PATIENT
  Sex: Male

DRUGS (4)
  1. LEVOXYL [Suspect]
     Indication: HYPOTHYROIDISM
     Dosage: 50 UG, 4X/DAY
     Route: 048
     Dates: start: 20110601
  2. LEVOXYL [Suspect]
     Dosage: UNK
     Dates: start: 20120401
  3. LEVOXYL [Suspect]
     Dosage: 50 UG, 4X/DAY
  4. LEVOTHYROXINE SODIUM [Suspect]
     Dosage: UNK
     Dates: start: 20120401, end: 20120401

REACTIONS (12)
  - RESPIRATORY DISORDER [None]
  - COUGH [None]
  - HEART RATE ABNORMAL [None]
  - FEELING ABNORMAL [None]
  - GALLBLADDER PAIN [None]
  - SKIN ODOUR ABNORMAL [None]
  - RASH [None]
  - BLOOD THYROID STIMULATING HORMONE DECREASED [None]
  - ASTHENIA [None]
  - DIZZINESS [None]
  - OEDEMA PERIPHERAL [None]
  - BLISTER [None]
